FAERS Safety Report 8588827-6 (Version None)
Quarter: 2012Q3

REPORT INFORMATION
  Report Type: 
  Country: None (occurrence: None)
  Receive Date: 20120813
  Receipt Date: 20120806
  Transmission Date: 20120928
  Serious: Yes (Hospitalization)
  Sender: FDA-Public Use
  Company Number: NL-AMGEN-NLDCT2012049152

PATIENT
  Age: 53 Year
  Sex: Female

DRUGS (2)
  1. GEMZAR [Concomitant]
     Indication: PANCREATIC CARCINOMA
     Dosage: UNK
     Dates: start: 20120626
  2. PANITUMUMAB [Suspect]
     Indication: PANCREATIC CARCINOMA
     Dosage: UNK
     Dates: start: 20120626

REACTIONS (3)
  - WEIGHT DECREASED [None]
  - NAUSEA [None]
  - VOMITING [None]
